FAERS Safety Report 5748704-2 (Version None)
Quarter: 2008Q2

REPORT INFORMATION
  Report Type: 
  Country: None (occurrence: None)
  Receive Date: 20080521
  Receipt Date: 20080512
  Transmission Date: 20081010
  Serious: Yes (Hospitalization)
  Sender: FDA-Public Use
  Company Number: GXKR2008GB04399

PATIENT
  Age: 44 Year
  Sex: Male
  Weight: 127 kg

DRUGS (4)
  1. SIMVASTATIN [Suspect]
     Indication: PROPHYLAXIS
     Dosage: 40 MG, ORAL
     Route: 048
     Dates: start: 20051201, end: 20071201
  2. GLICLAZIDE (GLICLAZIDE) [Concomitant]
  3. METFORMIN HCL [Concomitant]
  4. ROSIGLITAZONE [Concomitant]

REACTIONS (2)
  - AGGRESSION [None]
  - DEPRESSION [None]
